FAERS Safety Report 15765330 (Version 1)
Quarter: 2018Q4

REPORT INFORMATION
  Report Type: Spontaneous
  Country: FR (occurrence: FR)
  Receive Date: 20181227
  Receipt Date: 20181227
  Transmission Date: 20190205
  Serious: Yes (Other)
  Sender: FDA-Public Use
  Company Number: FR-SA-2018SA390697

PATIENT
  Age: 35 Year
  Sex: Female
  Weight: 64 kg

DRUGS (10)
  1. NICOTINE. [Suspect]
     Active Substance: NICOTINE
  2. DOLIPRANE [Suspect]
     Active Substance: ACETAMINOPHEN
     Indication: PAIN
     Dosage: +  GALICIAN CERATE
     Route: 048
     Dates: start: 20181106, end: 20181119
  3. SERTRALINE [Concomitant]
     Active Substance: SERTRALINE HYDROCHLORIDE
  4. SULFADIAZINE. [Suspect]
     Active Substance: SULFADIAZINE
     Indication: TOXOPLASMOSIS
     Dosage: 8 DF, QD
     Route: 048
     Dates: start: 20181106, end: 20181114
  5. LEDERFOLINE [Concomitant]
     Active Substance: LEUCOVORIN CALCIUM
  6. METHADONE [Concomitant]
     Active Substance: METHADONE HYDROCHLORIDE
  7. PYRIMETHAMINE [Concomitant]
     Active Substance: PYRIMETHAMINE
  8. COLECALCIFEROL [Suspect]
     Active Substance: CHOLECALCIFEROL
     Indication: VITAMIN SUPPLEMENTATION
     Dosage: 1 DF, TOTAL
     Route: 048
     Dates: start: 20181109, end: 20181109
  9. FUSIDIC ACID [Suspect]
     Active Substance: FUSIDIC ACID
     Indication: PRODUCT USED FOR UNKNOWN INDICATION
     Dosage: 1 DF, QD
     Route: 003
     Dates: start: 20181108, end: 20181112
  10. FLUCONAZOLE. [Suspect]
     Active Substance: FLUCONAZOLE
     Indication: PROPHYLAXIS
     Dosage: 1 DF, QD
     Route: 048
     Dates: start: 20181109, end: 20181112

REACTIONS (2)
  - Rash maculo-papular [Recovering/Resolving]
  - Hepatocellular injury [Recovering/Resolving]

NARRATIVE: CASE EVENT DATE: 20181110
